FAERS Safety Report 7681116-3 (Version None)
Quarter: 2011Q3

REPORT INFORMATION
  Report Type: 
  Country: None (occurrence: None)
  Receive Date: 20110812
  Receipt Date: 20110726
  Transmission Date: 20111222
  Serious: Yes (Other)
  Sender: FDA-Public Use
  Company Number: US-PFIZER INC-2011170739

PATIENT
  Age: 1 Year
  Sex: Male

DRUGS (1)
  1. EPINEPHRINE [Suspect]
     Indication: DRUG HYPERSENSITIVITY
     Dosage: 0.3 ML, SINGLE
     Route: 058
     Dates: start: 20110427, end: 20110427

REACTIONS (1)
  - DEVICE DEPLOYMENT ISSUE [None]
